FAERS Safety Report 13984012 (Version 4)
Quarter: 2017Q4

REPORT INFORMATION
  Report Type: Spontaneous
  Country: JP (occurrence: JP)
  Receive Date: 20170918
  Receipt Date: 20171030
  Transmission Date: 20180321
  Serious: Yes (Hospitalization)
  Sender: FDA-Public Use
  Company Number: JP-PFIZER INC-2017396394

PATIENT
  Age: 73 Year
  Sex: Female
  Weight: 37.7 kg

DRUGS (7)
  1. PIPERACILLIN AND TAZOBACTAM [Suspect]
     Active Substance: PIPERACILLIN SODIUM\TAZOBACTAM SODIUM
     Dosage: 4.5 G, 2X/DAY
     Route: 042
     Dates: start: 20170817, end: 20170817
  2. MINOCYCLINE [Suspect]
     Active Substance: MINOCYCLINE\MINOCYCLINE HYDROCHLORIDE
     Dosage: 100 MG, 2X/DAY
     Route: 065
     Dates: start: 20170824, end: 20170906
  3. MEROPEN [Suspect]
     Active Substance: MEROPENEM
     Indication: PNEUMONIA
     Dosage: 1 G, 2X/DAY
     Route: 041
     Dates: start: 20170824, end: 20170831
  4. PIPERACILLIN AND TAZOBACTAM [Suspect]
     Active Substance: PIPERACILLIN SODIUM\TAZOBACTAM SODIUM
     Dosage: 4.5 G, 2X/DAY
     Route: 042
     Dates: start: 20170821, end: 20170906
  5. FUNGUARD [Suspect]
     Active Substance: MICAFUNGIN SODIUM
     Dosage: 150 MG, DAILY
     Route: 041
     Dates: start: 20170821, end: 20170906
  6. AMBISOME [Suspect]
     Active Substance: AMPHOTERICIN B
     Dosage: 100 MG, DAILY
     Route: 041
     Dates: start: 20170824, end: 20170906
  7. DAIPHEN [Suspect]
     Active Substance: SULFAMETHOXAZOLE\TRIMETHOPRIM
     Dosage: 1 DF, DAILY
     Route: 048
     Dates: start: 20170821, end: 20170906

REACTIONS (1)
  - Diarrhoea [Recovering/Resolving]

NARRATIVE: CASE EVENT DATE: 20170824
